FAERS Safety Report 25920101 (Version 1)
Quarter: 2025Q4

REPORT INFORMATION
  Report Type: Report from Study
  Country: US (occurrence: US)
  Receive Date: 20251014
  Receipt Date: 20251014
  Transmission Date: 20260118
  Serious: Yes (Other)
  Sender: ALEXION PHARMACEUTICALS
  Company Number: 202507USA008550US

PATIENT
  Age: 78 Year
  Sex: Female

DRUGS (3)
  1. STRENSIQ [Suspect]
     Active Substance: ASFOTASE ALFA
     Indication: Phosphorus metabolism disorder
     Dosage: 2 MILLIGRAM/KILOGRAM, Q3W
  2. STRENSIQ [Suspect]
     Active Substance: ASFOTASE ALFA
     Dosage: 2 MILLIGRAM/KILOGRAM, Q3W
  3. PREDNISONE [Concomitant]
     Active Substance: PREDNISONE
     Indication: Asthma
     Dosage: 40 MILLIGRAM, QD
     Route: 065

REACTIONS (17)
  - Pneumonia [Unknown]
  - Pulmonary fibrosis [Unknown]
  - Hypothyroidism [Unknown]
  - Nephrolithiasis [Unknown]
  - Asthma [Unknown]
  - Weight increased [Unknown]
  - Bone pain [Unknown]
  - Insomnia [Unknown]
  - Discomfort [Unknown]
  - Hepatic lesion [Unknown]
  - Arthralgia [Unknown]
  - Bursitis [Unknown]
  - Tendon rupture [Unknown]
  - Joint effusion [Unknown]
  - Tendon disorder [Unknown]
  - Pulmonary function test decreased [Unknown]
  - Dyspnoea [Unknown]
